FAERS Safety Report 19795682 (Version 1)
Quarter: 2021Q3

REPORT INFORMATION
  Report Type: Other
  Country: GB (occurrence: GB)
  Receive Date: 20210907
  Receipt Date: 20210907
  Transmission Date: 20211014
  Serious: No
  Sender: FDA-Public Use
  Company Number: GB-LUPIN PHARMACEUTICALS INC.-2021-16295

PATIENT
  Sex: Female

DRUGS (1)
  1. SIMVASTATIN 20 MG TABLETS [Suspect]
     Active Substance: SIMVASTATIN
     Indication: PRODUCT USED FOR UNKNOWN INDICATION
     Dosage: 20 MILLIGRAM
     Route: 065

REACTIONS (5)
  - Manufacturing issue [Unknown]
  - Product quality issue [Unknown]
  - Product coating issue [Unknown]
  - Dysgeusia [Unknown]
  - Blister [Unknown]
